FAERS Safety Report 12714848 (Version 1)
Quarter: 2016Q3

REPORT INFORMATION
  Report Type: Spontaneous
  Country: IT (occurrence: IT)
  Receive Date: 20160905
  Receipt Date: 20160905
  Transmission Date: 20161109
  Serious: Yes (Hospitalization)
  Sender: FDA-Public Use
  Company Number: IT-JNJFOC-20160901812

PATIENT
  Age: 15 Year
  Sex: Male

DRUGS (3)
  1. RISPERDAL [Suspect]
     Active Substance: RISPERIDONE
     Indication: KABUKI MAKE-UP SYNDROME
     Dosage: STRENGTH: 1 MG/ML
     Route: 048
  2. RISPERDAL [Suspect]
     Active Substance: RISPERIDONE
     Indication: KABUKI MAKE-UP SYNDROME
     Dosage: IN THE EVENING
     Route: 048
     Dates: start: 20160827
  3. RISPERDAL [Suspect]
     Active Substance: RISPERIDONE
     Indication: KABUKI MAKE-UP SYNDROME
     Dosage: IN MORNING
     Route: 048
     Dates: start: 20160828

REACTIONS (6)
  - Pallor [Recovered/Resolved]
  - Somnolence [Recovered/Resolved]
  - Product use issue [Unknown]
  - Overdose [Unknown]
  - Off label use [Unknown]
  - Hyperhidrosis [Recovered/Resolved]

NARRATIVE: CASE EVENT DATE: 20160827
